FAERS Safety Report 15185871 (Version 1)
Quarter: 2018Q3

REPORT INFORMATION
  Report Type: Report from Study
  Country: US (occurrence: US)
  Receive Date: 20180723
  Receipt Date: 20180723
  Transmission Date: 20181010
  Serious: No
  Sender: FDA-Public Use
  Company Number: US-EXELIXIS-CABO-18013334

PATIENT
  Age: 90 Year
  Sex: Male

DRUGS (1)
  1. CABOMETYX [Suspect]
     Active Substance: CABOZANTINIB S-MALATE
     Indication: RENAL CANCER
     Dosage: 40 MG, UNK
     Dates: start: 20180306, end: 20180309

REACTIONS (6)
  - Feeling jittery [Unknown]
  - Gait disturbance [Unknown]
  - Sleep disorder [Unknown]
  - Burning sensation [Unknown]
  - Erythema [Unknown]
  - Balance disorder [Unknown]

NARRATIVE: CASE EVENT DATE: 201803
